FAERS Safety Report 4622684-5 (Version None)
Quarter: 2005Q1

REPORT INFORMATION
  Report Type: 
  Country: None (occurrence: None)
  Receive Date: 20050329
  Receipt Date: 20050329
  Transmission Date: 20050727
  Serious: Yes (Life-Threatening, Hospitalization)
  Sender: FDA-Public Use
  Company Number: None

PATIENT
  Age: 79 Year
  Sex: Male
  Weight: 73.0291 kg

DRUGS (1)
  1. WARFARIN     6 MG [Suspect]
     Indication: ATRIAL FIBRILLATION
     Dosage: 6 MG    T/TH/SAT/SUN    ORAL
     Route: 048
     Dates: start: 19980101, end: 20050328

REACTIONS (7)
  - ACCIDENTAL OVERDOSE [None]
  - ASTHENIA [None]
  - DYSSTASIA [None]
  - FALL [None]
  - GASTROINTESTINAL HAEMORRHAGE [None]
  - INTERNATIONAL NORMALISED RATIO INCREASED [None]
  - PAIN IN EXTREMITY [None]
